FAERS Safety Report 8542428-4 (Version None)
Quarter: 2012Q3

REPORT INFORMATION
  Report Type: 
  Country: None (occurrence: None)
  Receive Date: 20120726
  Receipt Date: 20120726
  Transmission Date: 20120928
  Serious: Yes (Death, Hospitalization, Other)
  Sender: FDA-Public Use
  Company Number: CO-ABBOTT-12P-036-0925531-00

PATIENT
  Sex: Female
  Weight: 55 kg

DRUGS (5)
  1. INSULINE [Concomitant]
     Indication: HYPERGLYCAEMIA
     Route: 065
     Dates: start: 20120401
  2. PREDNISOLONE [Concomitant]
     Indication: RHEUMATOID ARTHRITIS
     Route: 048
  3. ENALAPRIL MALEATE [Concomitant]
     Indication: HYPERTENSION
     Dosage: 20 MG
     Route: 048
  4. HUMIRA [Suspect]
     Indication: RHEUMATOID ARTHRITIS
     Route: 058
     Dates: start: 20090226, end: 20120324
  5. METHOTREXATE [Concomitant]
     Indication: RHEUMATOID ARTHRITIS
     Route: 048

REACTIONS (6)
  - DIALYSIS [None]
  - RESPIRATORY DISTRESS [None]
  - INFLUENZA [None]
  - DISEASE COMPLICATION [None]
  - CHOLECYSTECTOMY [None]
  - BRONCHOPNEUMONIA [None]
